FAERS Safety Report 7083459-3 (Version None)
Quarter: 2010Q4

REPORT INFORMATION
  Report Type: 
  Country: None (occurrence: None)
  Receive Date: 20101104
  Receipt Date: 20101027
  Transmission Date: 20110411
  Serious: Yes (Hospitalization)
  Sender: FDA-Public Use
  Company Number: B0681451A

PATIENT
  Sex: Female

DRUGS (5)
  1. VALACYCLOVIR HYDROCHLORIDE [Suspect]
     Dosage: 1TAB TWICE PER DAY
     Route: 048
     Dates: start: 20100924, end: 20101004
  2. IMUREL [Suspect]
     Indication: CROHN'S DISEASE
     Dosage: 125MG PER DAY
     Route: 048
     Dates: start: 20100924, end: 20101004
  3. PENTASA [Suspect]
     Dosage: 1UNIT TWICE PER DAY
     Route: 048
     Dates: start: 20100924, end: 20101004
  4. CORTANCYL [Suspect]
     Route: 048
     Dates: start: 20100921, end: 20100924
  5. REMICADE [Suspect]
     Dosage: 5MG SINGLE DOSE
     Route: 042
     Dates: start: 20100924, end: 20100924

REACTIONS (2)
  - PRURITUS GENERALISED [None]
  - RASH GENERALISED [None]
